FAERS Safety Report 21973953 (Version 1)
Quarter: 2023Q1

REPORT INFORMATION
  Report Type: Spontaneous
  Country: NL (occurrence: None)
  Receive Date: 20230209
  Receipt Date: 20230209
  Transmission Date: 20230418
  Serious: Yes (Other)
  Sender: FDA-Public Use
  Company Number: None

PATIENT
  Sex: Female
  Weight: 80 kg

DRUGS (3)
  1. TOCILIZUMAB [Suspect]
     Active Substance: TOCILIZUMAB
     Indication: Fibromyalgia
     Dosage: ONCE A WEEK
     Route: 065
     Dates: end: 20221227
  2. TOCILIZUMAB [Suspect]
     Active Substance: TOCILIZUMAB
     Indication: Rheumatoid arthritis
  3. TOCILIZUMAB [Suspect]
     Active Substance: TOCILIZUMAB
     Indication: Osteoarthritis

REACTIONS (4)
  - Influenza [Recovered/Resolved]
  - Bronchitis [Recovered/Resolved]
  - Fluid retention [Recovered/Resolved]
  - Throat tightness [Recovered/Resolved]
